FAERS Safety Report 4344106-4 (Version None)
Quarter: 2004Q2

REPORT INFORMATION
  Report Type: 
  Country: None (occurrence: None)
  Receive Date: 20040422
  Receipt Date: 20040108
  Transmission Date: 20050107
  Serious: No
  Sender: FDA-Public Use
  Company Number: US-GLAXOSMITHKLINE-A0492925A

PATIENT
  Age: 39 Year
  Sex: Male
  Weight: 91.8 kg

DRUGS (7)
  1. LEXIVA [Suspect]
     Indication: ILL-DEFINED DISORDER
     Route: 048
     Dates: start: 20031219
  2. COMBIVIR [Concomitant]
  3. ATIVAN [Concomitant]
  4. EFFEXOR [Concomitant]
  5. AMBIEN [Concomitant]
  6. QVAR 40 [Concomitant]
  7. ACYCLOVIR [Concomitant]

REACTIONS (1)
  - RASH MACULO-PAPULAR [None]
